FAERS Safety Report 7562662-X (Version None)
Quarter: 2011Q2

REPORT INFORMATION
  Report Type: 
  Country: None (occurrence: None)
  Receive Date: 20110622
  Receipt Date: 20110613
  Transmission Date: 20111010
  Serious: Yes (Other)
  Sender: FDA-Public Use
  Company Number: US-JNJFOC-20101005849

PATIENT
  Sex: Female
  Weight: 88.45 kg

DRUGS (2)
  1. TYELNOL WARMING COLD MULTI-SYMPTOM NIGHTTIME HONEY LEMON [Suspect]
     Indication: INFLUENZA LIKE ILLNESS
     Dates: start: 20101017, end: 20101017
  2. TYELNOL WARMING COLD MULTI-SYMPTOM NIGHTTIME HONEY LEMON [Suspect]

REACTIONS (2)
  - DEHYDRATION [None]
  - HYPERSENSITIVITY [None]
